FAERS Safety Report 16351613 (Version 2)
Quarter: 2019Q2

REPORT INFORMATION
  Report Type: Spontaneous
  Country: PH (occurrence: PH)
  Receive Date: 20190524
  Receipt Date: 20190528
  Transmission Date: 20190711
  Serious: Yes (Hospitalization, Other)
  Sender: FDA-Public Use
  Company Number: PH-HETERO CORPORATE-HET2019PH00679

PATIENT
  Age: 60 Year
  Sex: Male

DRUGS (2)
  1. ALTEPLASE RECOMBINANT [Suspect]
     Active Substance: ALTEPLASE
     Indication: PRODUCT USED FOR UNKNOWN INDICATION
     Dosage: 90 MG/KG AT 185 MINUTES POSTICTUS
     Route: 042
  2. LOSARTAN. [Suspect]
     Active Substance: LOSARTAN
     Indication: CEREBROVASCULAR ACCIDENT
     Dosage: UNK
     Route: 065

REACTIONS (2)
  - Angioedema [Recovered/Resolved]
  - Hemiparesis [Unknown]
